FAERS Safety Report 14139894 (Version 6)
Quarter: 2018Q1

REPORT INFORMATION
  Report Type: Spontaneous
  Country: US (occurrence: US)
  Receive Date: 20171030
  Receipt Date: 20180307
  Transmission Date: 20180508
  Serious: Yes (Other)
  Sender: FDA-Public Use
  Company Number: US-CELGENEUS-USA-20171001047

PATIENT
  Age: 70 Year
  Sex: Female
  Weight: 81.27 kg

DRUGS (3)
  1. REVLIMID [Suspect]
     Active Substance: LENALIDOMIDE
     Dosage: 25 MILLIGRAM
     Route: 048
     Dates: start: 201802
  2. REVLIMID [Suspect]
     Active Substance: LENALIDOMIDE
     Indication: PLASMA CELL MYELOMA
     Dosage: 25 MILLIGRAM
     Route: 048
     Dates: start: 20170719
  3. VELCADE [Concomitant]
     Active Substance: BORTEZOMIB
     Indication: PRODUCT USED FOR UNKNOWN INDICATION
     Route: 065

REACTIONS (22)
  - Asthenia [Recovered/Resolved]
  - Loss of consciousness [Unknown]
  - Abdominal pain upper [Unknown]
  - Somnolence [Unknown]
  - Decreased appetite [Unknown]
  - Neuropathy peripheral [Unknown]
  - Diarrhoea [Not Recovered/Not Resolved]
  - Cough [Not Recovered/Not Resolved]
  - Tremor [Recovered/Resolved]
  - Weight decreased [Unknown]
  - Blood creatinine decreased [Not Recovered/Not Resolved]
  - Gait disturbance [Unknown]
  - Dyspnoea exertional [Unknown]
  - Hypotension [Unknown]
  - Grip strength decreased [Unknown]
  - Respiratory tract infection [Not Recovered/Not Resolved]
  - Intentional product misuse [Unknown]
  - Dysgeusia [Unknown]
  - Fall [Recovered/Resolved]
  - Dizziness [Unknown]
  - Contusion [Unknown]
  - Fatigue [Unknown]

NARRATIVE: CASE EVENT DATE: 2017
